FAERS Safety Report 5642795-5 (Version None)
Quarter: 2008Q1

REPORT INFORMATION
  Report Type: 
  Country: None (occurrence: None)
  Receive Date: 20080131
  Receipt Date: 20071010
  Transmission Date: 20080703
  Serious: Yes (Life-Threatening, Hospitalization)
  Sender: FDA-Public Use
  Company Number: PHEH2007US13206

PATIENT
  Age: 63 Year
  Sex: Male
  Weight: 123.4 kg

DRUGS (6)
  1. TEKTURNA [Suspect]
     Dosage: 150 QD, ORAL
     Route: 048
     Dates: start: 20070905, end: 20070921
  2. DIOVAN [Concomitant]
  3. ACTOS (PIOGLITAZONE, PIOGLITAZONE HYDROCHLORIDE) [Concomitant]
  4. VYTORIN [Concomitant]
  5. ACIPHEX [Concomitant]
  6. CALCIUM (CALCIUM) [Concomitant]

REACTIONS (12)
  - ANGIOEDEMA [None]
  - DYSARTHRIA [None]
  - DYSPHAGIA [None]
  - DYSPNOEA [None]
  - FACE OEDEMA [None]
  - LIP OEDEMA [None]
  - OEDEMA [None]
  - PERIORBITAL OEDEMA [None]
  - PHARYNGEAL OEDEMA [None]
  - RESPIRATORY DISTRESS [None]
  - STRIDOR [None]
  - SWOLLEN TONGUE [None]
